FAERS Safety Report 24073811 (Version 1)
Quarter: 2024Q3

REPORT INFORMATION
  Report Type: Spontaneous
  Country: BE (occurrence: BE)
  Receive Date: 20240710
  Receipt Date: 20240710
  Transmission Date: 20241017
  Serious: No
  Sender: PIERRE FABRE MEDICAMENT
  Company Number: BE-PFM-2019-03710

PATIENT
  Age: 48 Year
  Sex: Female

DRUGS (14)
  1. PROPRANOLOL [Suspect]
     Active Substance: PROPRANOLOL HYDROCHLORIDE
     Indication: Migraine without aura
     Dosage: DOSAGE FORM: UNSPECIFIED
     Route: 065
  2. METOPROLOL SUCCINATE [Suspect]
     Active Substance: METOPROLOL SUCCINATE
     Indication: Migraine without aura
     Dosage: DOSAGE FORM: UNSPECIFIED
     Route: 065
  3. METOPROLOL SUCCINATE [Suspect]
     Active Substance: METOPROLOL SUCCINATE
     Dosage: DOSAGE FORM: UNSPECIFIED
     Route: 065
  4. VALPROATE [Suspect]
     Active Substance: VALPROIC ACID
     Indication: Migraine without aura
     Dosage: DOSAGE FORM: UNSPECIFIED
     Route: 065
  5. CANDESARTAN CILEXETIL [Suspect]
     Active Substance: CANDESARTAN CILEXETIL
     Indication: Migraine without aura
     Dosage: DOSAGE FORM: UNSPECIFIED
     Route: 065
  6. CANDESARTAN CILEXETIL [Suspect]
     Active Substance: CANDESARTAN CILEXETIL
     Dosage: DOSAGE FORM: UNSPECIFIED
     Route: 065
  7. VENLAFAXINE [Suspect]
     Active Substance: VENLAFAXINE HYDROCHLORIDE
     Indication: Migraine without aura
     Dosage: DOSAGE FORM: UNSPECIFIED
     Route: 065
  8. VENLAFAXINE [Suspect]
     Active Substance: VENLAFAXINE HYDROCHLORIDE
     Dosage: DOSAGE FORM: UNSPECIFIED
     Route: 065
  9. FLUNARIZINE [Suspect]
     Active Substance: FLUNARIZINE
     Indication: Migraine without aura
     Dosage: DOSAGE FORM: UNSPECIFIED
     Route: 065
  10. TOPIRAMATE [Suspect]
     Active Substance: TOPIRAMATE
     Indication: Migraine without aura
     Dosage: DOSAGE FORM: UNSPECIFIED
     Route: 048
  11. AMITRIPTYLINE [Suspect]
     Active Substance: AMITRIPTYLINE
     Indication: Migraine without aura
     Dosage: DOSAGE FORM: UNSPECIFIED
     Route: 065
  12. AMITRIPTYLINE [Suspect]
     Active Substance: AMITRIPTYLINE
     Dosage: DOSAGE FORM: UNSPECIFIED
     Route: 065
  13. MIRENA [Concomitant]
     Active Substance: LEVONORGESTREL
     Indication: Contraception
     Dosage: DOSAGE FORM: UNSPECIFIED
     Route: 065
  14. MIRENA [Concomitant]
     Active Substance: LEVONORGESTREL
     Dosage: DOSAGE FORM: UNSPECIFIED
     Route: 065

REACTIONS (5)
  - Weight increased [Unknown]
  - Treatment failure [Unknown]
  - Product use in unapproved indication [Unknown]
  - Product use issue [Unknown]
  - Off label use [Unknown]
